FAERS Safety Report 15389217 (Version 1)
Quarter: 2018Q3

REPORT INFORMATION
  Report Type: Other
  Country: ES (occurrence: ES)
  Receive Date: 20180917
  Receipt Date: 20180917
  Transmission Date: 20181010
  Serious: Yes (Life-Threatening, Hospitalization, Other)
  Sender: FDA-Public Use
  Company Number: ES-APOTEX-2018AP020552

PATIENT
  Age: 70 Year
  Sex: Female

DRUGS (3)
  1. SIMVASTATINA [Concomitant]
     Active Substance: SIMVASTATIN
     Indication: DYSLIPIDAEMIA
     Dosage: 0?0?1
     Route: 048
     Dates: start: 20130101
  2. IRBESARTAN AND HIDROCLOROTIAZIDA [Concomitant]
     Indication: HYPERTENSION
     Dosage: 1?0?0 I DAY INTERVAL
     Route: 048
     Dates: start: 20130101, end: 20170321
  3. LETROZOLE. [Suspect]
     Active Substance: LETROZOLE
     Indication: PRODUCT USED FOR UNKNOWN INDICATION
     Dosage: 1 CP DIA
     Route: 048
     Dates: start: 20140801

REACTIONS (1)
  - Acute myeloid leukaemia [Not Recovered/Not Resolved]

NARRATIVE: CASE EVENT DATE: 20170321
